FAERS Safety Report 19755541 (Version 2)
Quarter: 2021Q3

REPORT INFORMATION
  Report Type: Report from Study
  Country: IL (occurrence: IL)
  Receive Date: 20210827
  Receipt Date: 20210831
  Transmission Date: 20211014
  Serious: Yes (Hospitalization)
  Sender: FDA-Public Use
  Company Number: IL-EISAI MEDICAL RESEARCH-EC-2021-098240

PATIENT
  Age: 75 Year
  Sex: Female
  Weight: 53 kg

DRUGS (4)
  1. PEMBROLIZUMAB. [Suspect]
     Active Substance: PEMBROLIZUMAB
     Indication: PANCREATIC CARCINOMA
     Route: 041
     Dates: start: 20210526, end: 20210707
  2. LENVATINIB [Suspect]
     Active Substance: LENVATINIB
     Indication: PANCREATIC CARCINOMA
     Dosage: STARTING DOSE AT 20 MG, FLUCTUATED DOSAGE (UP TO 35 CYCLES OR UNTIL DISEASE PROGRESSION)
     Route: 048
     Dates: start: 20210526, end: 20210727
  3. PEMBROLIZUMAB. [Suspect]
     Active Substance: PEMBROLIZUMAB
     Route: 041
     Dates: start: 20210728, end: 20210728
  4. LENVATINIB [Suspect]
     Active Substance: LENVATINIB
     Dosage: (UP TO 35 CYCLES OR UNTIL DISEASE PROGRESSION)
     Route: 048
     Dates: start: 20210728, end: 2021

REACTIONS (2)
  - Subdural haematoma [Not Recovered/Not Resolved]
  - Syncope [Recovered/Resolved]

NARRATIVE: CASE EVENT DATE: 20210815
